FAERS Safety Report 19176523 (Version 1)
Quarter: 2021Q2

REPORT INFORMATION
  Report Type: Report from Study
  Country: US (occurrence: US)
  Receive Date: 20210423
  Receipt Date: 20210423
  Transmission Date: 20210717
  Serious: Yes (Other)
  Sender: FDA-Public Use
  Company Number: US-ASTRAZENECA-2021A324628

PATIENT
  Sex: Female

DRUGS (2)
  1. FASENRA [Suspect]
     Active Substance: BENRALIZUMAB
     Indication: BRONCHIECTASIS
     Dosage: 30 MG/ML AT WEEK 8 THEN EVERY 8 WEEKS THEREAFTER
     Route: 058
  2. FASENRA [Suspect]
     Active Substance: BENRALIZUMAB
     Indication: BRONCHIECTASIS
     Dosage: 30 MG/ML AT WEEK 8 THEN EVERY 8 WEEKS THEREAFTER HAS SINCE RESUMED
     Route: 058

REACTIONS (2)
  - Product dose omission issue [Unknown]
  - Bronchitis [Unknown]
